FAERS Safety Report 7206649-5 (Version None)
Quarter: 2010Q4

REPORT INFORMATION
  Report Type: 
  Country: None (occurrence: None)
  Receive Date: 20101217
  Receipt Date: 20101001
  Transmission Date: 20110411
  Serious: No
  Sender: FDA-Public Use
  Company Number: 2010-00858

PATIENT
  Age: 69 Year
  Sex: Male
  Weight: 88.4514 kg

DRUGS (6)
  1. ZICAM COLD REMEDY PLUS LIQUI-LOZ [Suspect]
     Dosage: QID X 3 DAYS
     Dates: start: 20100929, end: 20101001
  2. PLAVIX [Concomitant]
  3. METOPROLOL [Concomitant]
  4. ACTOS [Concomitant]
  5. ASCORBIC ACID [Concomitant]
  6. MULTIPLE VITAMIN [Concomitant]

REACTIONS (1)
  - AGEUSIA [None]
